FAERS Safety Report 5178986-X (Version None)
Quarter: 2006Q4

REPORT INFORMATION
  Report Type: 
  Country: None (occurrence: None)
  Receive Date: 20061215
  Receipt Date: 20061215
  Transmission Date: 20070319
  Serious: Yes (Other)
  Sender: FDA-Public Use
  Company Number: None

PATIENT
  Age: 76 Year
  Sex: Female
  Weight: 73.4827 kg

DRUGS (9)
  1. AVASTIN - BEVACIZIMAB- [Suspect]
     Indication: LUNG NEOPLASM MALIGNANT
     Dosage: 500 MG/M2   Q14 DAYS  IV
     Route: 042
     Dates: start: 20061019, end: 20061102
  2. ALIMTA [Suspect]
     Indication: LUNG NEOPLASM MALIGNANT
     Dosage: 10 MG/KG  Q14DAYS  IV
     Route: 042
     Dates: start: 20061019, end: 20061102
  3. MULTI-VITAMIN [Concomitant]
  4. VITAMIN D AND CALCIUM [Concomitant]
  5. LIPITOR [Concomitant]
  6. EVISTA [Concomitant]
  7. GENERIC PRILOSEC [Concomitant]
  8. METAMUCIL [Concomitant]
  9. ZANTAC [Concomitant]

REACTIONS (8)
  - ABDOMINAL DISTENSION [None]
  - ASTHENIA [None]
  - BACK PAIN [None]
  - BLOOD PRESSURE SYSTOLIC INCREASED [None]
  - FATIGUE [None]
  - INTERVERTEBRAL DISC PROTRUSION [None]
  - NEUTROPENIA [None]
  - RESPIRATORY RATE INCREASED [None]
